FAERS Safety Report 5795068-4 (Version None)
Quarter: 2008Q2

REPORT INFORMATION
  Report Type: 
  Country: None (occurrence: None)
  Receive Date: 20080630
  Receipt Date: 20080318
  Transmission Date: 20081010
  Serious: No
  Sender: FDA-Public Use
  Company Number: US-BRISTOL-MYERS SQUIBB COMPANY-14127088

PATIENT

DRUGS (1)
  1. ORENCIA [Suspect]
     Dates: start: 20080226

REACTIONS (1)
  - HERPES ZOSTER [None]
